FAERS Safety Report 14950770 (Version 1)
Quarter: 2018Q2

REPORT INFORMATION
  Report Type: Spontaneous
  Country: IT (occurrence: IT)
  Receive Date: 20180530
  Receipt Date: 20180530
  Transmission Date: 20180711
  Serious: Yes (Other)
  Sender: FDA-Public Use
  Company Number: IT-ACCORD-063335

PATIENT
  Age: 69 Year
  Sex: Male
  Weight: 168 kg

DRUGS (4)
  1. CALCIUM LEVOFOLINATE TEVA [Concomitant]
     Active Substance: LEVOLEUCOVORIN CALCIUM
     Indication: COLORECTAL ADENOCARCINOMA
     Dosage: STRENGTH 100 MG
     Route: 042
     Dates: start: 20171228
  2. FLUOROURACIL AHCL [Suspect]
     Active Substance: FLUOROURACIL
     Indication: COLORECTAL ADENOCARCINOMA
     Dosage: STRENGTH 50 MG/ML
     Route: 042
     Dates: start: 20171228
  3. AVASTIN [Concomitant]
     Active Substance: BEVACIZUMAB
     Indication: COLORECTAL ADENOCARCINOMA
     Dosage: STRENGTH 400 MG
     Route: 042
     Dates: start: 20171228
  4. IRINOTECAN MYLAN GENERICS [Suspect]
     Active Substance: IRINOTECAN
     Indication: COLORECTAL ADENOCARCINOMA
     Dosage: STRENGTH 20 MG/ML
     Route: 042
     Dates: start: 20171228

REACTIONS (2)
  - Neutropenia [Recovering/Resolving]
  - Leukopenia [Recovering/Resolving]

NARRATIVE: CASE EVENT DATE: 20180111
